FAERS Safety Report 8784755 (Version 1)
Quarter: 2012Q4

REPORT INFORMATION
  Report Type: Spontaneous
  Country: US (occurrence: None)
  Receive Date: 20120907
  Receipt Date: 20120907
  Transmission Date: 20130627
  Serious: Yes (Other)
  Sender: FDA-Public Use
  Company Number: None

PATIENT
  Age: 31 Year
  Sex: Female
  Weight: 61.24 kg

DRUGS (2)
  1. QUETIAPINE [Suspect]
     Indication: MIGRAINE
     Dosage: 1 at bedtime
     Dates: start: 20120410, end: 20120419
  2. QUETIAPINE [Suspect]
     Indication: HEADACHE
     Dosage: 1 at bedtime
     Dates: start: 20120410, end: 20120419

REACTIONS (3)
  - Restless legs syndrome [None]
  - Product substitution issue [None]
  - Pain in extremity [None]
